FAERS Safety Report 23540749 (Version 1)
Quarter: 2024Q1

REPORT INFORMATION
  Report Type: Spontaneous
  Country: US (occurrence: US)
  Receive Date: 20240219
  Receipt Date: 20240219
  Transmission Date: 20240410
  Serious: No
  Sender: FDA-Public Use
  Company Number: US-Stemline Therapeutics, Inc.-2023ST005179

PATIENT
  Age: 49 Year
  Sex: Female
  Weight: 74.002 kg

DRUGS (1)
  1. ORSERDU [Suspect]
     Active Substance: ELACESTRANT
     Indication: Product used for unknown indication
     Dosage: 345MG, ORAL, ONCE A DAY
     Route: 048
     Dates: start: 20231128

REACTIONS (3)
  - Adverse drug reaction [Unknown]
  - Diarrhoea [Recovering/Resolving]
  - Hot flush [Not Recovered/Not Resolved]

NARRATIVE: CASE EVENT DATE: 20231128
